FAERS Safety Report 6354878-5 (Version None)
Quarter: 2009Q3

REPORT INFORMATION
  Report Type: 
  Country: None (occurrence: None)
  Receive Date: 20090914
  Receipt Date: 20090903
  Transmission Date: 20100115
  Serious: Yes (Hospitalization, Other)
  Sender: FDA-Public Use
  Company Number: US-AMGEN-QUU362880

PATIENT
  Age: 52 Year
  Sex: Female
  Weight: 71.7 kg

DRUGS (7)
  1. ENBREL [Suspect]
     Indication: RHEUMATOID ARTHRITIS
     Dates: start: 20071201, end: 20090701
  2. PLAVIX [Suspect]
     Route: 048
     Dates: start: 20090301
  3. METHOTREXATE [Suspect]
     Indication: RHEUMATOID ARTHRITIS
     Dates: start: 20071201
  4. PLAQUENIL [Suspect]
     Indication: DRUG USE FOR UNKNOWN INDICATION
     Route: 048
     Dates: start: 20010101
  5. ACETASALICYLIC ACID [Concomitant]
     Route: 048
  6. RANITIDINE HYDROCHLORIDE [Concomitant]
     Route: 048
  7. METOPROLOL SUCCINATE [Concomitant]

REACTIONS (6)
  - ANGINA PECTORIS [None]
  - CARDIAC FAILURE [None]
  - CORONARY ARTERY OCCLUSION [None]
  - GASTROINTESTINAL DISORDER [None]
  - PULMONARY HYPERTENSION [None]
  - ROSACEA [None]
